FAERS Safety Report 8789592 (Version 3)
Quarter: 2013Q1

REPORT INFORMATION
  Report Type: Spontaneous
  Country: DK (occurrence: None)
  Receive Date: 20120905
  Receipt Date: 20121016
  Transmission Date: 20140127
  Serious: Yes (Hospitalization)
  Sender: FDA-Public Use
  Company Number: 2012MA010626

PATIENT
  Age: 39 Year
  Sex: Male

DRUGS (12)
  1. DICLOFENAC SODIUM [Suspect]
     Indication: MUSCULOSKELETAL PAIN
     Route: 048
     Dates: start: 20120703, end: 20120726
  2. FLUOXETINE [Suspect]
     Indication: DEPRESSION
     Route: 048
  3. METHADONE [Concomitant]
  4. SERETIDE [Concomitant]
  5. TRAMADOL [Concomitant]
  6. PREGABALIN [Concomitant]
  7. FERROUS SULPHATE [Concomitant]
  8. LANSOPRAZOLE [Concomitant]
  9. PARACETAMOL [Concomitant]
  10. MULTIVITAMIN [Concomitant]
  11. THIAMINE [Concomitant]
  12. SALBUTAMOL [Concomitant]

REACTIONS (3)
  - Gastrointestinal haemorrhage [None]
  - Bleeding varicose vein [None]
  - Melaena [None]
